FAERS Safety Report 4784868-5 (Version None)
Quarter: 2005Q3

REPORT INFORMATION
  Report Type: 
  Country: None (occurrence: None)
  Receive Date: 20050928
  Receipt Date: 20050919
  Transmission Date: 20060218
  Serious: Yes (Hospitalization)
  Sender: FDA-Public Use
  Company Number: US015519

PATIENT
  Age: 72 Year
  Sex: Female

DRUGS (1)
  1. GABITRIL [Suspect]
     Indication: BACK PAIN
     Dates: end: 20050101

REACTIONS (4)
  - COMPLEX PARTIAL SEIZURES [None]
  - MITRAL VALVE DISEASE [None]
  - PULMONARY HYPERTENSION [None]
  - TRANSIENT ISCHAEMIC ATTACK [None]
